FAERS Safety Report 7879524-0 (Version None)
Quarter: 2011Q4

REPORT INFORMATION
  Report Type: 
  Country: None (occurrence: None)
  Receive Date: 20111101
  Receipt Date: 20111019
  Transmission Date: 20120403
  Serious: Yes (Hospitalization)
  Sender: FDA-Public Use
  Company Number: US-GLAXOSMITHKLINE-A0768725A

PATIENT
  Age: 51 Year
  Sex: Female
  Weight: 95.5 kg

DRUGS (10)
  1. HUMALOG [Concomitant]
     Dates: start: 19980101, end: 20000101
  2. AVANDIA [Suspect]
     Indication: TYPE 2 DIABETES MELLITUS
     Dosage: 8MG PER DAY
     Route: 048
     Dates: start: 19990101, end: 20040101
  3. CARDURA [Concomitant]
  4. ATENOLOL [Concomitant]
  5. LANTUS [Concomitant]
     Dates: start: 19980101, end: 20000101
  6. GLUCOTROL [Concomitant]
     Dates: start: 19980101, end: 20000101
  7. DIOVAN [Concomitant]
  8. GLUCOPHAGE [Concomitant]
     Dates: start: 19980101, end: 20000101
  9. REGULAR INSULIN [Concomitant]
     Dates: start: 19980101, end: 20000101
  10. DIABETA [Concomitant]
     Dates: start: 19980101, end: 20000101

REACTIONS (3)
  - CORONARY ARTERY DISEASE [None]
  - CARDIAC FAILURE CONGESTIVE [None]
  - CEREBROVASCULAR ACCIDENT [None]
